FAERS Safety Report 23524203 (Version 1)
Quarter: 2024Q1

REPORT INFORMATION
  Report Type: Spontaneous
  Country: CN (occurrence: CN)
  Receive Date: 20240214
  Receipt Date: 20240214
  Transmission Date: 20240410
  Serious: Yes (Hospitalization)
  Sender: FDA-Public Use
  Company Number: CN-Eisai-EC-2024-158948

PATIENT
  Age: 64 Year
  Sex: Female
  Weight: 54 kg

DRUGS (2)
  1. LENVATINIB [Suspect]
     Active Substance: LENVATINIB
     Indication: Hepatic cancer
     Dosage: 2 CAPSULES (DOSE UNKNOWN)
     Route: 048
     Dates: start: 20240105, end: 20240124
  2. LENVATINIB [Suspect]
     Active Substance: LENVATINIB
     Dosage: 1 CAPSULE (DOSE UNKNOWN)
     Route: 048
     Dates: start: 20240126

REACTIONS (4)
  - Myelosuppression [Not Recovered/Not Resolved]
  - Abdominal pain [Recovering/Resolving]
  - Diarrhoea [Recovering/Resolving]
  - Asthenia [Recovering/Resolving]

NARRATIVE: CASE EVENT DATE: 20240125
